FAERS Safety Report 10016625 (Version 1)
Quarter: 2014Q1

REPORT INFORMATION
  Report Type: Spontaneous
  Country: US (occurrence: US)
  Receive Date: 20140317
  Receipt Date: 20140317
  Transmission Date: 20141002
  Serious: No
  Sender: FDA-Public Use
  Company Number: US-ALLERGAN-1306866US

PATIENT
  Age: 66 Year
  Sex: Female

DRUGS (4)
  1. FML [Suspect]
     Indication: DRY EYE
     Dosage: 2 GTT, UNK
     Route: 047
     Dates: start: 2012
  2. FML [Suspect]
     Indication: INFLAMMATION
  3. METOPROLOL [Concomitant]
     Indication: HYPERTENSION
     Dosage: 25 MG, BID
     Route: 048
     Dates: start: 2011
  4. EQUATE EYE OINTMENT [Concomitant]
     Indication: DRY EYE
     Dosage: UNK, QHS
     Route: 047

REACTIONS (5)
  - Off label use [Unknown]
  - Incorrect dose administered [Unknown]
  - Drug ineffective [Unknown]
  - Foreign body sensation in eyes [Unknown]
  - Dysgeusia [Unknown]
